FAERS Safety Report 14833093 (Version 4)
Quarter: 2019Q3

REPORT INFORMATION
  Report Type: Spontaneous
  Country: US (occurrence: US)
  Receive Date: 20180501
  Receipt Date: 20190911
  Transmission Date: 20191004
  Serious: Yes (Hospitalization, Other)
  Sender: FDA-Public Use
  Company Number: US-ASTRAZENECA-2018SE50403

PATIENT
  Age: 19928 Day
  Sex: Female
  Weight: 49 kg

DRUGS (20)
  1. FUROSEMIDE. [Concomitant]
     Active Substance: FUROSEMIDE
  2. NEXIUM [Suspect]
     Active Substance: ESOMEPRAZOLE MAGNESIUM
     Route: 048
     Dates: start: 20130413
  3. LOSARTAN. [Concomitant]
     Active Substance: LOSARTAN
  4. AMOXICILLIN. [Concomitant]
     Active Substance: AMOXICILLIN
  5. CIPROFLOXACIN. [Concomitant]
     Active Substance: CIPROFLOXACIN
  6. METFORMIN [Concomitant]
     Active Substance: METFORMIN HYDROCHLORIDE
  7. SIMVASTATIN. [Concomitant]
     Active Substance: SIMVASTATIN
  8. RENVELA [Concomitant]
     Active Substance: SEVELAMER CARBONATE
  9. PREDNISONE. [Concomitant]
     Active Substance: PREDNISONE
  10. NEXIUM [Suspect]
     Active Substance: ESOMEPRAZOLE MAGNESIUM
     Route: 048
     Dates: start: 20000101
  11. GLIPIZIDE. [Concomitant]
     Active Substance: GLIPIZIDE
  12. METRONIDAZOLE. [Concomitant]
     Active Substance: METRONIDAZOLE
  13. OXYCODONE [Concomitant]
     Active Substance: OXYCODONE
  14. NEXIUM [Suspect]
     Active Substance: ESOMEPRAZOLE MAGNESIUM
     Route: 048
     Dates: start: 2009, end: 2014
  15. NEXIUM 24HR [Suspect]
     Active Substance: ESOMEPRAZOLE MAGNESIUM
     Route: 048
     Dates: start: 2009, end: 2014
  16. METOPROLOL. [Concomitant]
     Active Substance: METOPROLOL
  17. LISINOPRIL. [Concomitant]
     Active Substance: LISINOPRIL
  18. HYDRALAZINE [Concomitant]
     Active Substance: HYDRALAZINE HYDROCHLORIDE
  19. DIAZEPAM. [Concomitant]
     Active Substance: DIAZEPAM
  20. VOLTAREN [Concomitant]
     Active Substance: DICLOFENAC SODIUM

REACTIONS (5)
  - Renal failure [Unknown]
  - Pyelocaliectasis [Not Recovered/Not Resolved]
  - End stage renal disease [Not Recovered/Not Resolved]
  - Acute kidney injury [Not Recovered/Not Resolved]
  - Chronic kidney disease [Unknown]

NARRATIVE: CASE EVENT DATE: 20120712
